FAERS Safety Report 9518224 (Version 3)
Quarter: 2013Q4

REPORT INFORMATION
  Report Type: Report from Study
  Country: JP (occurrence: JP)
  Receive Date: 20130912
  Receipt Date: 20131127
  Transmission Date: 20140711
  Serious: Yes (Other)
  Sender: FDA-Public Use
  Company Number: JP-JNJFOC-20130903315

PATIENT
  Age: 73 Year
  Sex: Male
  Weight: 67 kg

DRUGS (14)
  1. SIMPONI [Suspect]
     Indication: RHEUMATOID ARTHRITIS
     Route: 058
     Dates: start: 20130514, end: 20130514
  2. SIMPONI [Suspect]
     Indication: RHEUMATOID ARTHRITIS
     Route: 058
     Dates: start: 20130115, end: 20130115
  3. METHOTREXATE [Suspect]
     Indication: RHEUMATOID ARTHRITIS
     Route: 065
     Dates: start: 20121106
  4. PREDONINE [Suspect]
     Indication: RHEUMATOID ARTHRITIS
     Route: 048
  5. MOBIC [Concomitant]
     Indication: RHEUMATOID ARTHRITIS
     Route: 048
  6. FOLIAMIN [Concomitant]
     Indication: PROPHYLAXIS
     Route: 048
  7. SELBEX [Concomitant]
     Indication: PROPHYLAXIS
     Route: 048
  8. FEBURIC [Concomitant]
     Indication: HYPERURICAEMIA
     Route: 048
  9. VITAMEDIN [Concomitant]
     Indication: PROPHYLAXIS
     Route: 048
  10. DIOVAN [Concomitant]
     Route: 048
  11. ATELEC [Concomitant]
     Route: 048
  12. WARFARIN [Concomitant]
     Route: 048
  13. URIEF [Concomitant]
     Route: 048
  14. ISCOTIN [Concomitant]
     Indication: PROPHYLAXIS
     Route: 048

REACTIONS (1)
  - Sepsis [Recovered/Resolved]
